FAERS Safety Report 7964107-4 (Version None)
Quarter: 2011Q4

REPORT INFORMATION
  Report Type: 
  Country: None (occurrence: None)
  Receive Date: 20111208
  Receipt Date: 20111124
  Transmission Date: 20120403
  Serious: Yes (Hospitalization)
  Sender: FDA-Public Use
  Company Number: RS-ELI_LILLY_AND_COMPANY-RS201111008148

PATIENT
  Sex: Male
  Weight: 92 kg

DRUGS (17)
  1. CISPLATIN [Suspect]
     Indication: NON-SMALL CELL LUNG CANCER
     Dosage: 160 MG, EVERY 21 DAYS PER CYCLE
     Route: 042
     Dates: start: 20110728
  2. IRON [Concomitant]
     Indication: SUPPLEMENTATION THERAPY
     Dosage: UNK
     Dates: start: 20111013
  3. MEGESTROL ACETATE [Concomitant]
     Indication: DECREASED APPETITE
     Dosage: UNK
     Dates: start: 20111118
  4. ESOMEPRAZOLE [Concomitant]
     Indication: ABDOMINAL PAIN UPPER
     Dosage: UNK
     Dates: start: 20110914
  5. RANITIDINE [Concomitant]
     Indication: ABDOMINAL PAIN UPPER
     Dosage: UNK
     Dates: start: 20110908, end: 20110914
  6. PREDNISOLONE [Concomitant]
     Indication: LEUKOPENIA
     Dosage: UNK
     Route: 048
     Dates: start: 20110920
  7. ONDANSETRON [Concomitant]
     Indication: NAUSEA
     Dosage: UNK
     Dates: start: 20110901
  8. MAGNESIUM SULFATE [Concomitant]
     Indication: HYPOMAGNESAEMIA
     Dosage: UNK
     Dates: start: 20111109
  9. FOLAN [Concomitant]
     Indication: ANAEMIA
     Dosage: UNK
     Dates: start: 20111013
  10. NEBIVOLOL HCL [Concomitant]
     Indication: HYPERTENSION
     Dosage: 5 MG, UNK
     Dates: start: 20110522
  11. ATORVASTATIN [Concomitant]
     Indication: HYPERLIPIDAEMIA
     Dosage: 20 MG, UNK
     Dates: start: 20110522
  12. DICLOFENAC SODIUM [Concomitant]
     Indication: MUSCULOSKELETAL DISORDER
     Dosage: UNK
     Dates: start: 20110825
  13. GEMCITABINE HYDROCHLORIDE [Suspect]
     Indication: NON-SMALL CELL LUNG CANCER
     Dosage: 2700 MG, EVERY 21 DAYS PER CYCLE
     Route: 042
     Dates: start: 20110728
  14. DEXAMETHASONE [Concomitant]
     Indication: LEUKOPENIA
     Dosage: UNK
     Dates: start: 20111116, end: 20111118
  15. ASPIRIN [Concomitant]
     Indication: ACUTE MYOCARDIAL INFARCTION
     Dosage: 1000 MG, UNK
     Dates: start: 20110522
  16. AMLODIPINE BESYLATE [Concomitant]
     Indication: HYPERTENSION
     Dosage: 5 MG, UNK
     Dates: start: 20030522
  17. ASCORBIC ACID [Concomitant]
     Indication: FATIGUE
     Dosage: UNK
     Dates: start: 20111101, end: 20111101

REACTIONS (2)
  - DIARRHOEA [None]
  - FATIGUE [None]
